FAERS Safety Report 4724828-3 (Version None)
Quarter: 2005Q3

REPORT INFORMATION
  Report Type: 
  Country: None (occurrence: None)
  Receive Date: 20050720
  Receipt Date: 20050720
  Transmission Date: 20060218
  Serious: No
  Sender: FDA-Public Use
  Company Number: None

PATIENT
  Age: 49 Year
  Sex: Male
  Weight: 86.1834 kg

DRUGS (1)
  1. PROZAC [Suspect]
     Indication: DEPRESSION
     Dosage: 10MG   DAILY  4 DAYS   ORAL;  20MG   DAILY  4 DAYS   ORAL
     Route: 048
     Dates: start: 20050707, end: 20050714

REACTIONS (3)
  - COLD SWEAT [None]
  - NERVOUSNESS [None]
  - TINNITUS [None]
